FAERS Safety Report 5618632-1 (Version None)
Quarter: 2008Q1

REPORT INFORMATION
  Report Type: 
  Country: None (occurrence: None)
  Receive Date: 20080205
  Receipt Date: 20080205
  Transmission Date: 20080703
  Serious: No
  Sender: FDA-Public Use
  Company Number: None

PATIENT
  Age: 69 Year
  Sex: Male
  Weight: 77.1115 kg

DRUGS (1)
  1. ZETIA [Suspect]
     Indication: BLOOD CHOLESTEROL DECREASED
     Dosage: ONE  DAILY  PO
     Route: 048
     Dates: start: 20070209, end: 20070222

REACTIONS (4)
  - DIARRHOEA [None]
  - EXERCISE TOLERANCE DECREASED [None]
  - MYALGIA [None]
  - TENDERNESS [None]
